FAERS Safety Report 4498390-7 (Version None)
Quarter: 2004Q4

REPORT INFORMATION
  Report Type: 
  Country: None (occurrence: None)
  Receive Date: 20041105
  Receipt Date: 20041027
  Transmission Date: 20050328
  Serious: Yes (Hospitalization)
  Sender: FDA-Public Use
  Company Number: 2004-10-1931

PATIENT
  Age: 43 Year
  Sex: Male

DRUGS (1)
  1. CLARITYNE (LORATADINE) TABLETS 'LIKE CLARITIN' [Suspect]
     Indication: PRURITUS
     Dosage: 10MG/DAY ORAL
     Route: 048
     Dates: start: 20041025, end: 20041027

REACTIONS (5)
  - CELLULITIS [None]
  - ERYTHEMA [None]
  - INFECTION [None]
  - PHOTOSENSITIVITY REACTION [None]
  - SWELLING FACE [None]
